FAERS Safety Report 7292335-2 (Version None)
Quarter: 2011Q1

REPORT INFORMATION
  Report Type: 
  Country: None (occurrence: None)
  Receive Date: 20110210
  Receipt Date: 20110210
  Transmission Date: 20110831
  Serious: Yes (Other)
  Sender: FDA-Public Use
  Company Number: None

PATIENT
  Sex: Female

DRUGS (2)
  1. VENLAFAXINE HYDROCHLORIDE (EFFEXOR XR) [Suspect]
     Indication: BIPOLAR I DISORDER
     Dosage: 150 MG DLY PO 20010
     Route: 048
  2. MIRTAZAPINE [Suspect]
     Indication: BIPOLAR I DISORDER
     Dosage: 30MG QHS PO 20010
     Route: 048

REACTIONS (3)
  - HALLUCINATION [None]
  - ABNORMAL BEHAVIOUR [None]
  - PSYCHOTIC DISORDER [None]
